FAERS Safety Report 6706799-3 (Version None)
Quarter: 2010Q2

REPORT INFORMATION
  Report Type: 
  Country: None (occurrence: None)
  Receive Date: 20100503
  Receipt Date: 20100423
  Transmission Date: 20101027
  Serious: Yes (Hospitalization)
  Sender: FDA-Public Use
  Company Number: PHHO2010CN06244

PATIENT
  Sex: Male
  Weight: 50.4 kg

DRUGS (4)
  1. BLINDED ALISKIREN ALI+TAB+CF [Suspect]
     Dosage: RUN IN PHASE
     Route: 048
  2. BLINDED ENALAPRIL COMP-ENA+ [Suspect]
     Dosage: RUN IN PHASE
     Route: 048
  3. BLINDED NO TREATMENT RECEIVED NOMED [Suspect]
     Dosage: RUN IN PHASE
     Route: 048
  4. COMPARATOR ENALAPRIL [Suspect]
     Indication: CARDIAC FAILURE
     Dosage: 20MG
     Dates: start: 20100316, end: 20100405

REACTIONS (3)
  - CARDIAC FAILURE [None]
  - DISEASE PROGRESSION [None]
  - DYSPNOEA PAROXYSMAL NOCTURNAL [None]
